FAERS Safety Report 10155085 (Version 2)
Quarter: 2014Q2

REPORT INFORMATION
  Report Type: Spontaneous
  Country: IT (occurrence: IT)
  Receive Date: 20140506
  Receipt Date: 20140624
  Transmission Date: 20141212
  Serious: Yes (Hospitalization)
  Sender: FDA-Public Use
  Company Number: IT-SA-2014SA053705

PATIENT
  Age: 64 Year
  Sex: Female

DRUGS (2)
  1. LASIX [Suspect]
     Indication: CORONARY ARTERY DISEASE
     Route: 048
     Dates: start: 20130101, end: 20140409
  2. FERLIXIT [Concomitant]
     Dosage: SOLUTION FOR ORAL USE AND IV USE
     Route: 048

REACTIONS (2)
  - Syncope [Recovered/Resolved]
  - Hypokalaemia [Recovered/Resolved]
